FAERS Safety Report 5900045-6 (Version None)
Quarter: 2008Q3

REPORT INFORMATION
  Report Type: 
  Country: None (occurrence: None)
  Receive Date: 20080925
  Receipt Date: 20080925
  Transmission Date: 20090109
  Serious: Yes (Hospitalization)
  Sender: FDA-Public Use
  Company Number: None

PATIENT
  Age: 59 Year
  Sex: Female
  Weight: 73.0291 kg

DRUGS (2)
  1. TOPAMAX [Suspect]
     Indication: MIGRAINE
     Dosage: 75MG DAILY PO
     Route: 048
     Dates: start: 20060901, end: 20080905
  2. BLUE POPPY BRAND HERBAL SUPPLEMENT [Concomitant]

REACTIONS (2)
  - DELUSION [None]
  - PARANOIA [None]
